FAERS Safety Report 6184567-1 (Version None)
Quarter: 2009Q2

REPORT INFORMATION
  Report Type: 
  Country: None (occurrence: None)
  Receive Date: 20090508
  Receipt Date: 20090428
  Transmission Date: 20091009
  Serious: Yes (Hospitalization, Other)
  Sender: FDA-Public Use
  Company Number: US-MERCK-0809USA03568

PATIENT
  Age: 55 Year
  Sex: Female

DRUGS (2)
  1. FOSAMAX [Suspect]
     Indication: POSTMENOPAUSE
     Route: 048
     Dates: start: 20000101
  2. ZOMETA [Concomitant]
     Route: 065
     Dates: start: 20000101

REACTIONS (25)
  - ABSCESS [None]
  - ANXIETY [None]
  - ARTERIOSCLEROSIS CORONARY ARTERY [None]
  - BLOOD CHOLESTEROL INCREASED [None]
  - BURNING SENSATION [None]
  - DEMENTIA [None]
  - EMOTIONAL DISTRESS [None]
  - EXOSTOSIS [None]
  - GINGIVAL BLEEDING [None]
  - HYPERTENSION [None]
  - IMPAIRED HEALING [None]
  - INFLAMMATORY BOWEL DISEASE [None]
  - JAW DISORDER [None]
  - JOINT RANGE OF MOTION DECREASED [None]
  - MAJOR DEPRESSION [None]
  - NERVOUS SYSTEM DISORDER [None]
  - NONSPECIFIC REACTION [None]
  - OEDEMA MOUTH [None]
  - ORAL HERPES [None]
  - ORAL INFECTION [None]
  - OSTEONECROSIS [None]
  - PARAESTHESIA [None]
  - ROTATOR CUFF SYNDROME [None]
  - SINUS DISORDER [None]
  - TRISMUS [None]
